FAERS Safety Report 10227049 (Version 1)
Quarter: 2014Q2

REPORT INFORMATION
  Report Type: Spontaneous
  Country: DE (occurrence: DE)
  Receive Date: 20140610
  Receipt Date: 20140610
  Transmission Date: 20141212
  Serious: Yes (Hospitalization)
  Sender: FDA-Public Use
  Company Number: DE-TEVA-485289GER

PATIENT
  Sex: 0

DRUGS (6)
  1. LONQUEX [Suspect]
     Route: 058
  2. DOXORUBICIN NOS [Suspect]
  3. VINCRISTINE [Suspect]
  4. PREDNISOLONE [Suspect]
  5. CYCLOPHOSPHAMIDE [Suspect]
  6. RITUXIMAB [Suspect]

REACTIONS (2)
  - Febrile neutropenia [Unknown]
  - Sepsis [Unknown]
